FAERS Safety Report 25980300 (Version 1)
Quarter: 2025Q4

REPORT INFORMATION
  Report Type: Spontaneous
  Country: US (occurrence: None)
  Receive Date: 20251029
  Receipt Date: 20251029
  Transmission Date: 20260118
  Serious: Yes (Other)
  Sender: FDA-CTU
  Company Number: None

PATIENT
  Age: 32 Year
  Sex: Female
  Weight: 77.11 kg

DRUGS (1)
  1. PARAGARD T 380A [Suspect]
     Active Substance: COPPER
     Dates: start: 20090405, end: 20150210

REACTIONS (3)
  - Abortion spontaneous [None]
  - Myometrial thinning [None]
  - Infertility female [None]

NARRATIVE: CASE EVENT DATE: 20150516
